FAERS Safety Report 20490647 (Version 10)
Quarter: 2023Q4

REPORT INFORMATION
  Report Type: Spontaneous
  Country: US (occurrence: US)
  Receive Date: 20220218
  Receipt Date: 20231222
  Transmission Date: 20240110
  Serious: No
  Sender: FDA-Public Use
  Company Number: US-PFIZER INC-202200106546

PATIENT
  Age: 70 Year
  Sex: Male

DRUGS (6)
  1. BRAFTOVI [Suspect]
     Active Substance: ENCORAFENIB
     Indication: Ear neoplasm malignant
     Dosage: 75 MG
     Dates: start: 20220325
  2. BRAFTOVI [Suspect]
     Active Substance: ENCORAFENIB
     Indication: Small cell lung cancer
     Dosage: 450 MG (6 CAPSULES OF 75 MG), EVERY DAY
     Route: 048
  3. BRAFTOVI [Suspect]
     Active Substance: ENCORAFENIB
     Indication: Malignant melanoma
  4. MEKTOVI [Suspect]
     Active Substance: BINIMETINIB
     Indication: Ear neoplasm malignant
     Dosage: 15 MG
     Dates: start: 20220325
  5. MEKTOVI [Suspect]
     Active Substance: BINIMETINIB
     Indication: Small cell lung cancer
     Dosage: 45 MG (3 TABLETS OF 15 MG), BID (TWICE A DAY)
  6. MEKTOVI [Suspect]
     Active Substance: BINIMETINIB
     Indication: Malignant melanoma

REACTIONS (3)
  - Bradykinesia [Unknown]
  - Feeling abnormal [Unknown]
  - Hypoacusis [Unknown]
